FAERS Safety Report 18274507 (Version 1)
Quarter: 2020Q3

REPORT INFORMATION
  Report Type: Spontaneous
  Country: US (occurrence: US)
  Receive Date: 20200916
  Receipt Date: 20200916
  Transmission Date: 20201103
  Serious: Yes (Other)
  Sender: FDA-Public Use
  Company Number: US-PFIZER INC-2020357097

PATIENT
  Age: 65 Year
  Sex: Female
  Weight: 132 kg

DRUGS (1)
  1. LYRICA [Suspect]
     Active Substance: PREGABALIN
     Indication: PAIN
     Dosage: 200 MG, 3X/DAY
     Dates: start: 2013

REACTIONS (2)
  - Dyspnoea [Unknown]
  - COVID-19 [Unknown]

NARRATIVE: CASE EVENT DATE: 202008
